FAERS Safety Report 20404840 (Version 1)
Quarter: 2022Q1

REPORT INFORMATION
  Report Type: Spontaneous
  Country: US (occurrence: None)
  Receive Date: 20220128
  Receipt Date: 20220128
  Transmission Date: 20220423
  Serious: Yes (Other)
  Sender: FDA-Public Use
  Company Number: None

PATIENT
  Age: 70 Year
  Sex: Female

DRUGS (1)
  1. EVEROLIMUS [Suspect]
     Active Substance: EVEROLIMUS
     Dosage: OTHER QUANTITY : 1MG AM, 1.5MG PM;?FREQUENCY : TWICE A DAY;?
     Route: 048
     Dates: start: 20201221

REACTIONS (2)
  - Myalgia [None]
  - Chemotherapeutic drug level increased [None]
